FAERS Safety Report 7367271-3 (Version None)
Quarter: 2011Q1

REPORT INFORMATION
  Report Type: 
  Country: None (occurrence: None)
  Receive Date: 20110311
  Receipt Date: 20110228
  Transmission Date: 20110831
  Serious: Yes (Death)
  Sender: FDA-Public Use
  Company Number: IDA-00463

PATIENT
  Age: 33 Year
  Sex: Female

DRUGS (3)
  1. INDERAL [Suspect]
     Indication: TACHYCARDIA
     Dosage: ORAL TABLET,
     Route: 048
  2. METHIMAZOLE [Concomitant]
  3. POTASSIUM IODINE [Concomitant]

REACTIONS (1)
  - CARDIO-RESPIRATORY ARREST [None]
